FAERS Safety Report 25131968 (Version 3)
Quarter: 2025Q2

REPORT INFORMATION
  Report Type: Spontaneous
  Country: CA (occurrence: CA)
  Receive Date: 20250327
  Receipt Date: 20250623
  Transmission Date: 20250717
  Serious: Yes (Hospitalization)
  Sender: SANDOZ
  Company Number: CA-002147023-NVSC2025CA050018

PATIENT
  Age: 60 Year
  Sex: Female

DRUGS (1)
  1. ZOLEDRONIC ACID [Suspect]
     Active Substance: ZOLEDRONIC ACID
     Indication: Osteoporosis
     Dosage: SOLUTION INTRAVENOUS 1 EVERY 1 YEAR
     Route: 042

REACTIONS (4)
  - Urinary tract infection [Unknown]
  - Walking aid user [Unknown]
  - Hospitalisation [Unknown]
  - Treatment noncompliance [Unknown]
